FAERS Safety Report 8757253 (Version 1)
Quarter: 2012Q4

REPORT INFORMATION
  Report Type: 
  Country: DE (occurrence: DE)
  Receive Date: 20120828
  Receipt Date: 20120828
  Transmission Date: 20130627
  Serious: Yes (Hospitalization)
  Sender: FDA-Public Use
  Company Number: DE-MYLANLABS-2012S1016828

PATIENT
  Age: 58 Year
  Sex: Female
  Weight: 60 kg

DRUGS (1)
  1. BACLOFEN [Suspect]
     Indication: PRODUCT USED FOR UNKNOWN INDICATION
     Route: 048
     Dates: start: 20120813

REACTIONS (6)
  - Overdose [Unknown]
  - Dyspnoea [Unknown]
  - Respiratory failure [Unknown]
  - Sopor [Unknown]
  - Confusional state [Unknown]
  - Convulsion [Unknown]
